FAERS Safety Report 5262226-7 (Version None)
Quarter: 2007Q1

REPORT INFORMATION
  Report Type: 
  Country: None (occurrence: None)
  Receive Date: 20070312
  Receipt Date: 20070305
  Transmission Date: 20070707
  Serious: Yes (Other)
  Sender: FDA-Public Use
  Company Number: US-BAYER-200710771BWH

PATIENT
  Age: 57 Year
  Sex: Female

DRUGS (4)
  1. NEXAVAR [Suspect]
     Indication: MALIGNANT MELANOMA
     Dosage: TOTAL DAILY DOSE: 800 MG  UNIT DOSE: 200 MG
     Route: 048
     Dates: start: 20061201, end: 20061201
  2. NEXAVAR [Suspect]
     Dosage: TOTAL DAILY DOSE: 400 MG  UNIT DOSE: 200 MG
     Route: 048
     Dates: start: 20061226, end: 20070227
  3. TEMODAR [Suspect]
     Dates: start: 20061201
  4. FOSAMAX [Concomitant]

REACTIONS (5)
  - DRY SKIN [None]
  - EYE SWELLING [None]
  - RASH [None]
  - SKIN LESION [None]
  - SWELLING FACE [None]
